FAERS Safety Report 20803259 (Version 1)
Quarter: 2022Q2

REPORT INFORMATION
  Report Type: Spontaneous
  Country: US (occurrence: US)
  Receive Date: 20220509
  Receipt Date: 20220509
  Transmission Date: 20220721
  Serious: No
  Sender: FDA-Public Use
  Company Number: US-AMGEN-USASP2022079407

PATIENT
  Sex: Female

DRUGS (7)
  1. OTEZLA [Suspect]
     Active Substance: APREMILAST
     Indication: Lichen planus
     Dosage: UNK, UNK
     Route: 065
  2. OTEZLA [Suspect]
     Active Substance: APREMILAST
     Indication: Off label use
  3. GLUTEN [Concomitant]
     Active Substance: WHEAT GLUTEN
  4. IODINE [Concomitant]
     Active Substance: IODINE
  5. POTASSIUM IODIDE [Concomitant]
     Active Substance: POTASSIUM IODIDE
  6. LACTOSE [Concomitant]
     Active Substance: LACTOSE
  7. LICHEN [Concomitant]

REACTIONS (1)
  - Off label use [Unknown]
